FAERS Safety Report 24198200 (Version 1)
Quarter: 2024Q3

REPORT INFORMATION
  Report Type: Spontaneous
  Country: FI (occurrence: FI)
  Receive Date: 20240812
  Receipt Date: 20240812
  Transmission Date: 20241016
  Serious: Yes (Disabling)
  Sender: NOVO NORDISK
  Company Number: None

PATIENT
  Age: 68 Year
  Sex: Female

DRUGS (6)
  1. RABEPRAZOLE SODIUM [Concomitant]
     Active Substance: RABEPRAZOLE SODIUM
     Indication: Gastrooesophageal reflux disease
     Dosage: 20 MG1 TABLET A DAY AS A TREATMENT COURSE
     Route: 048
     Dates: start: 2002
  2. BISOPROLOL [Concomitant]
     Active Substance: BISOPROLOL\BISOPROLOL FUMARATE
     Indication: Blood pressure measurement
     Dosage: 5 MG, QD ( 2 TABLETS A DAY)
     Route: 048
     Dates: start: 2010
  3. CYMBALTA [Concomitant]
     Active Substance: DULOXETINE HYDROCHLORIDE
     Indication: Panic disorder
     Dosage: 60 MG, QD(1 TABLET A DAY)
     Route: 048
  4. OZEMPIC [Suspect]
     Active Substance: SEMAGLUTIDE
     Dosage: 1 MG, QW(MAINTENANCE DOSING 1 MG INJECTED WEEKLY)
     Dates: end: 202405
  5. OZEMPIC [Suspect]
     Active Substance: SEMAGLUTIDE
     Indication: Weight control
     Dosage: UNK (INITIATED WITH LOWER AMOUNTS)
     Dates: start: 2023
  6. LOSARTAN ORION [Concomitant]
     Indication: Hypertension
     Dosage: 50 MG, QD (1 TABLET A DAY)
     Route: 048
     Dates: start: 2010

REACTIONS (10)
  - Alopecia [Recovering/Resolving]
  - Anal incontinence [Recovering/Resolving]
  - Impaired gastric emptying [Recovering/Resolving]
  - Flatulence [Recovering/Resolving]
  - Nausea [Recovering/Resolving]
  - Vomiting [Recovering/Resolving]
  - Eructation [Recovering/Resolving]
  - Diarrhoea [Recovering/Resolving]
  - Dyspepsia [Recovering/Resolving]
  - Off label use [Recovering/Resolving]

NARRATIVE: CASE EVENT DATE: 20231201
